FAERS Safety Report 8235683-1 (Version None)
Quarter: 2012Q1

REPORT INFORMATION
  Report Type: 
  Country: None (occurrence: None)
  Receive Date: 20120326
  Receipt Date: 20120313
  Transmission Date: 20120608
  Serious: Yes (Other)
  Sender: FDA-Public Use
  Company Number: PHHY2011AR07017

PATIENT
  Age: 23 Year
  Sex: Female

DRUGS (4)
  1. LINEZOLID [Suspect]
     Indication: TUBERCULOSIS
     Dosage: 600 MG, BID
  2. LINEZOLID [Suspect]
     Dosage: 600 MG, QD
  3. MELLARIL [Suspect]
     Indication: TUBERCULOSIS
  4. AMINOSALICYLIC ACID [Suspect]
     Indication: TUBERCULOSIS

REACTIONS (1)
  - OPTIC NEUROPATHY [None]
